FAERS Safety Report 16029007 (Version 1)
Quarter: 2019Q2

REPORT INFORMATION
  Report Type: Spontaneous
  Country: US (occurrence: US)
  Receive Date: 20190301
  Receipt Date: 20190301
  Transmission Date: 20190711
  Serious: Yes (Other)
  Sender: FDA-Public Use
  Company Number: None

PATIENT
  Age: 80 Year
  Sex: Male
  Weight: 135 kg

DRUGS (20)
  1. AMLODIPINE BESYLATE. [Concomitant]
     Active Substance: AMLODIPINE BESYLATE
  2. CYTRA-3 [Concomitant]
  3. TRIAMTERENE HCTZ [Concomitant]
     Active Substance: HYDROCHLOROTHIAZIDE\TRIAMTERENE
  4. BYSTOLIC [Concomitant]
     Active Substance: NEBIVOLOL HYDROCHLORIDE
  5. CALCIUM CARBONATE ANTACID [Concomitant]
  6. GLIPIZIDE. [Concomitant]
     Active Substance: GLIPIZIDE
  7. BICALUTAMIDE. [Concomitant]
     Active Substance: BICALUTAMIDE
  8. PRAMOXINE HCL [Concomitant]
     Active Substance: PRAMOXINE HYDROCHLORIDE
  9. LEVOTHYROXINE SODIUM. [Concomitant]
     Active Substance: LEVOTHYROXINE SODIUM
  10. GABAPENTIN. [Concomitant]
     Active Substance: GABAPENTIN
  11. VENLAFAXINE HCL [Concomitant]
     Active Substance: VENLAFAXINE HYDROCHLORIDE
  12. PROCHLORPERAZINE MALEATE. [Concomitant]
     Active Substance: PROCHLORPERAZINE MALEATE
  13. RANTIDINE HCL [Concomitant]
  14. MULTI VITAMIN [Concomitant]
     Active Substance: VITAMINS
  15. TERAZOSIN HCL [Concomitant]
     Active Substance: TERAZOSIN HYDROCHLORIDE
  16. AMOXICILLIN. [Concomitant]
     Active Substance: AMOXICILLIN
  17. OMEPRAZOLE. [Concomitant]
     Active Substance: OMEPRAZOLE
  18. SIMVASTATIN. [Concomitant]
     Active Substance: SIMVASTATIN
  19. ZYTIGA [Suspect]
     Active Substance: ABIRATERONE ACETATE
     Indication: PROSTATE CANCER
     Route: 048
     Dates: start: 20190130
  20. FERROUS SULFATE. [Concomitant]
     Active Substance: FERROUS SULFATE

REACTIONS (1)
  - Rash [None]
